FAERS Safety Report 6685967-3 (Version None)
Quarter: 2010Q2

REPORT INFORMATION
  Report Type: 
  Country: None (occurrence: None)
  Receive Date: 20100419
  Receipt Date: 20100406
  Transmission Date: 20101027
  Serious: Yes (Hospitalization)
  Sender: FDA-Public Use
  Company Number: PHEH2010US00500

PATIENT
  Sex: Male
  Weight: 71.655 kg

DRUGS (3)
  1. EXJADE [Suspect]
     Indication: IRON OVERLOAD
     Dosage: 1500 MG DAILY
     Route: 048
     Dates: start: 20091101, end: 20091201
  2. FOLIC ACID [Concomitant]
     Indication: ANAEMIA
     Dosage: 4 MG/D
     Route: 048
  3. PHENERGAN [Concomitant]
     Indication: NAUSEA
     Dosage: 1 PRN
     Route: 048

REACTIONS (3)
  - MALAISE [None]
  - PAIN [None]
  - SICKLE CELL ANAEMIA WITH CRISIS [None]
